FAERS Safety Report 21359052 (Version 1)
Quarter: 2022Q3

REPORT INFORMATION
  Report Type: Spontaneous
  Country: GB (occurrence: GB)
  Receive Date: 20220921
  Receipt Date: 20220921
  Transmission Date: 20221026
  Serious: Yes (Other)
  Sender: FDA-Public Use
  Company Number: GB-MYLANLABS-2022M1095150

PATIENT
  Age: 38 Year
  Sex: Female

DRUGS (3)
  1. MODAFINIL [Suspect]
     Active Substance: MODAFINIL
     Indication: Chronic fatigue syndrome
     Dosage: 100 MILLIGRAM
     Route: 065
  2. MODAFINIL [Suspect]
     Active Substance: MODAFINIL
     Dosage: 400 MILLIGRAM, IN MORNING
     Route: 065
  3. FLUOXETINE [Concomitant]
     Active Substance: FLUOXETINE HYDROCHLORIDE
     Indication: Bulimia nervosa
     Dosage: 80 MILLIGRAM, QD
     Route: 065

REACTIONS (3)
  - Myalgia [Unknown]
  - Pain [Unknown]
  - Off label use [Unknown]
